FAERS Safety Report 14018509 (Version 1)
Quarter: 2017Q3

REPORT INFORMATION
  Report Type: Spontaneous
  Country: US (occurrence: None)
  Receive Date: 20170928
  Receipt Date: 20170928
  Transmission Date: 20171128
  Serious: Yes (Death, Hospitalization)
  Sender: FDA-Public Use
  Company Number: None

PATIENT
  Age: 3 Year
  Sex: Male
  Weight: 15.5 kg

DRUGS (5)
  1. METHOTREXATE. [Suspect]
     Active Substance: METHOTREXATE
     Dates: end: 20170922
  2. VINCRISTINE SULFATE. [Suspect]
     Active Substance: VINCRISTINE SULFATE
     Dates: end: 20170922
  3. ONCASPAR [Suspect]
     Active Substance: PEGASPARGASE
     Dates: end: 20170918
  4. CYTARABINE. [Suspect]
     Active Substance: CYTARABINE
     Dates: end: 20170914
  5. DEXAMETHASONE. [Suspect]
     Active Substance: DEXAMETHASONE
     Dates: end: 20170926

REACTIONS (30)
  - Grunting [None]
  - Metabolic acidosis [None]
  - Necrotising fasciitis [None]
  - Pulseless electrical activity [None]
  - Liver disorder [None]
  - Septic shock [None]
  - Complication associated with device [None]
  - Hepatomegaly [None]
  - Respiratory tract haemorrhage [None]
  - Eye movement disorder [None]
  - Blood potassium increased [None]
  - Splenic necrosis [None]
  - Computerised tomogram abnormal [None]
  - Hepatic ischaemia [None]
  - Cardiac arrest [None]
  - Neutropenia [None]
  - Haematocrit decreased [None]
  - Hepatitis [None]
  - Hyponatraemia [None]
  - Bradycardia [None]
  - Vomiting [None]
  - Unresponsive to stimuli [None]
  - Seizure [None]
  - Oxygen saturation decreased [None]
  - Muscle disorder [None]
  - Blood phosphorus increased [None]
  - Bacillus test positive [None]
  - Catheter site thrombosis [None]
  - Blood pressure decreased [None]
  - Emphysema [None]

NARRATIVE: CASE EVENT DATE: 20170925
